FAERS Safety Report 8430842-7 (Version None)
Quarter: 2012Q2

REPORT INFORMATION
  Report Type: 
  Country: None (occurrence: None)
  Receive Date: 20120612
  Receipt Date: 20120604
  Transmission Date: 20120825
  Serious: Yes (Hospitalization)
  Sender: FDA-Public Use
  Company Number: US-JNJFOC-20120602524

PATIENT
  Age: 6 Decade
  Sex: Male

DRUGS (1)
  1. XARELTO [Suspect]
     Indication: ANTICOAGULANT THERAPY
     Route: 048

REACTIONS (2)
  - PROTHROMBIN TIME PROLONGED [None]
  - CEREBROVASCULAR ACCIDENT [None]
